FAERS Safety Report 8195146-9 (Version None)
Quarter: 2012Q1

REPORT INFORMATION
  Report Type: 
  Country: None (occurrence: None)
  Receive Date: 20120308
  Receipt Date: 20111101
  Transmission Date: 20120608
  Serious: No
  Sender: FDA-Public Use
  Company Number: US-GLAXOSMITHKLINE-A0951510A

PATIENT
  Age: 62 Year
  Sex: Male

DRUGS (1)
  1. NICORETTE [Suspect]
     Indication: EX-TOBACCO USER
     Dates: end: 20111029

REACTIONS (4)
  - EYE SWELLING [None]
  - LIP OEDEMA [None]
  - RASH MACULAR [None]
  - LIP SWELLING [None]
